FAERS Safety Report 4960272-1 (Version None)
Quarter: 2006Q1

REPORT INFORMATION
  Report Type: 
  Country: None (occurrence: None)
  Receive Date: 20060328
  Receipt Date: 20060316
  Transmission Date: 20060701
  Serious: Yes (Death)
  Sender: FDA-Public Use
  Company Number: 2006037064

PATIENT
  Age: 68 Year
  Sex: Female
  Weight: 65 kg

DRUGS (32)
  1. ZYVOX [Suspect]
     Indication: PNEUMONIA
     Dosage: 1200 MG (600 MG, 2 IN 1D), INTRAVENOUS
     Route: 042
     Dates: start: 20060313, end: 20060314
  2. CLACIUM CHLORIDE (CALCIUM CHLORIDE ANHYDROUS) [Concomitant]
  3. ENOXAPARIN SODIUM [Concomitant]
  4. GLUCOSE (GLUCOSE) [Concomitant]
  5. MERONEM (MEROPENEM) [Concomitant]
  6. SOLU-CORTEF [Concomitant]
  7. VANCOMYCIN HCL [Concomitant]
  8. ZANTAC [Concomitant]
  9. ALL OTHER THERAPEUTIC PRODUCTS (ALL OTHER THERAPEUTIC PRODUCTS) [Concomitant]
  10. ACTRAPID (INSULIN) [Concomitant]
  11. DOBUTAMINE (DOBUTAMINE) [Concomitant]
  12. MIDAZOLAM HCL [Concomitant]
  13. HEPARIN [Concomitant]
  14. LEVOPHED [Concomitant]
  15. ULTIVA [Concomitant]
  16. DOPAMINE HCL [Concomitant]
  17. AMUKIN (AMIKACIN SULFATE) [Concomitant]
  18. CAPOTEN [Concomitant]
  19. ALL OTHER THERAPEUTIC PRODUCT (ALL OTHER THERAPEUTIC PRODUCTS) [Concomitant]
  20. HYPNOMIDATE [Concomitant]
  21. LASIX [Concomitant]
  22. AUGMENTIN '125' [Concomitant]
  23. VALIUM [Concomitant]
  24. ANEXATE (FLUMAZENIL) [Concomitant]
  25. METRONIDAZOLE [Concomitant]
  26. MAXIPIME [Concomitant]
  27. NALOXONE [Concomitant]
  28. DOPAMINE HCL [Concomitant]
  29. CALCIUM (CALCIUM) [Concomitant]
  30. NIMBEX (CISATRACURIUM BESILATE0 [Concomitant]
  31. OPIOIDS (OPIOIDS) [Concomitant]
  32. HALDOL SOLUTAB [Concomitant]

REACTIONS (3)
  - CARDIOGENIC SHOCK [None]
  - SEPTIC SHOCK [None]
  - THERAPY NON-RESPONDER [None]
